FAERS Safety Report 13446678 (Version 1)
Quarter: 2017Q2

REPORT INFORMATION
  Report Type: Spontaneous
  Country: MX (occurrence: MX)
  Receive Date: 20170417
  Receipt Date: 20170417
  Transmission Date: 20170830
  Serious: Yes (Other)
  Sender: FDA-Public Use
  Company Number: MX-CONCORDIA PHARMACEUTICALS INC.-GSH201704-002410

PATIENT
  Sex: Female

DRUGS (3)
  1. METICORTEN [Concomitant]
     Active Substance: PREDNISONE
  2. ARAVA [Suspect]
     Active Substance: LEFLUNOMIDE
     Indication: PRODUCT USED FOR UNKNOWN INDICATION
     Route: 048
  3. PLAQUENIL [Suspect]
     Active Substance: HYDROXYCHLOROQUINE SULFATE
     Indication: PRODUCT USED FOR UNKNOWN INDICATION
     Route: 048

REACTIONS (6)
  - Alopecia [Unknown]
  - Myalgia [Unknown]
  - Pruritus [Unknown]
  - Muscular weakness [Unknown]
  - Haematoma [Unknown]
  - Urinary tract infection [Unknown]
